FAERS Safety Report 13537170 (Version 1)
Quarter: 2017Q2

REPORT INFORMATION
  Report Type: Spontaneous
  Country: US (occurrence: US)
  Receive Date: 20170511
  Receipt Date: 20170511
  Transmission Date: 20170830
  Serious: No
  Sender: FDA-Public Use
  Company Number: US-GLAXOSMITHKLINE-US2017GSK069132

PATIENT
  Age: 56 Year
  Sex: Female

DRUGS (1)
  1. VENTOLIN HFA [Suspect]
     Active Substance: ALBUTEROL SULFATE
     Indication: ASTHMA
     Dosage: UNK
     Dates: start: 2013

REACTIONS (5)
  - Cough [Unknown]
  - Ill-defined disorder [Unknown]
  - Extra dose administered [Unknown]
  - Headache [Unknown]
  - Laryngitis viral [Unknown]

NARRATIVE: CASE EVENT DATE: 201701
